FAERS Safety Report 4983420-6 (Version None)
Quarter: 2006Q2

REPORT INFORMATION
  Report Type: 
  Country: None (occurrence: None)
  Receive Date: 20060419
  Receipt Date: 20060327
  Transmission Date: 20061013
  Serious: Yes (Hospitalization)
  Sender: FDA-Public Use
  Company Number: IT200512004132

PATIENT
  Age: 49 Year
  Sex: Male
  Weight: 95 kg

DRUGS (4)
  1. PEMETREXED (PEMETREXED) VIAL [Suspect]
     Indication: NON-SMALL CELL LUNG CANCER
     Dosage: 1000 G, OTHER, INTRAVENOUS
     Route: 042
     Dates: start: 20051021, end: 20051221
  2. OMEPRAZEN (OMEPRAZOLE) [Concomitant]
  3. SOLDESAM (DEXAMETHASONE SODIUM PHOSPHATE) [Concomitant]
  4. ANALAGESICS [Concomitant]

REACTIONS (9)
  - ALANINE AMINOTRANSFERASE INCREASED [None]
  - ASPARTATE AMINOTRANSFERASE INCREASED [None]
  - BACK PAIN [None]
  - DISEASE PROGRESSION [None]
  - FIBRIN D DIMER INCREASED [None]
  - HAEMOGLOBIN DECREASED [None]
  - LYMPHANGITIS [None]
  - OSTEOLYSIS [None]
  - SPINAL DISORDER [None]
